FAERS Safety Report 5388063-0 (Version None)
Quarter: 2007Q3

REPORT INFORMATION
  Report Type: 
  Country: None (occurrence: None)
  Receive Date: 20070716
  Receipt Date: 20070702
  Transmission Date: 20080115
  Serious: Yes (Hospitalization)
  Sender: FDA-Public Use
  Company Number: GB-ELI_LILLY_AND_COMPANY-GB200707003548

PATIENT
  Age: 55 Year
  Sex: Male
  Weight: 48.4 kg

DRUGS (14)
  1. GEMCITABINE HCL [Suspect]
     Indication: PANCREATIC CARCINOMA
     Dosage: 1700 MG, UNK
     Dates: start: 20060410, end: 20070212
  2. GEMCITABINE HCL [Suspect]
     Dates: start: 20070410
  3. INVESTIGATIONAL DRUG [Concomitant]
     Dosage: 5 MG, 2/D
     Route: 048
     Dates: start: 20060410
  4. CREON [Concomitant]
     Dates: start: 20070510
  5. LEVOTHYROXINE SODIUM [Concomitant]
     Indication: HYPOTHYROIDISM
     Dates: start: 20070401
  6. CALCITRIOL [Concomitant]
     Dates: start: 20070101
  7. CALCICHEW [Concomitant]
     Dates: start: 20070101
  8. ATENOLOL [Concomitant]
     Dates: start: 20060410
  9. DOMPERIDONE [Concomitant]
  10. LANSOPRAZOLE [Concomitant]
     Dates: start: 20070410
  11. ZOMETA [Concomitant]
     Indication: METASTASES TO BONE
  12. THERAPEUTIC RADIOPHARMACEUTICALS [Concomitant]
     Indication: METASTASES TO BONE
     Dates: start: 20070202
  13. BLOOD TRANSFUSION, AUXILIARY PRODUCTS [Concomitant]
     Indication: ANAEMIA
     Dates: start: 20061106, end: 20061106
  14. BLOOD TRANSFUSION, AUXILIARY PRODUCTS [Concomitant]
     Dates: start: 20070123, end: 20070123

REACTIONS (1)
  - HYPONATRAEMIA [None]
